FAERS Safety Report 6659837-0 (Version None)
Quarter: 2010Q1

REPORT INFORMATION
  Report Type: 
  Country: None (occurrence: None)
  Receive Date: 20100330
  Receipt Date: 20100330
  Transmission Date: 20100710
  Serious: Yes (Life-Threatening, Hospitalization)
  Sender: FDA-Public Use
  Company Number: None

PATIENT
  Age: 50 Year
  Sex: Female
  Weight: 50.3493 kg

DRUGS (5)
  1. VIVELLE [Suspect]
     Indication: HYSTERECTOMY
     Dosage: .01 1X WEEK
     Dates: start: 20081001
  2. MAXALT [Suspect]
     Indication: MIGRAINE
     Dosage: 5 1OR 2 EVERY 2 OR 3 WEEKS
     Dates: start: 20060301
  3. MAXALT [Suspect]
     Indication: ORAL CONTRACEPTION
     Dosage: 5 1OR 2 EVERY 2 OR 3 WEEKS
     Dates: start: 20060301
  4. MAXALT [Suspect]
     Indication: TRANSDERMAL CONTRACEPTION
     Dosage: 5 1OR 2 EVERY 2 OR 3 WEEKS
     Dates: start: 20060301
  5. VITAMIN D3 [Concomitant]

REACTIONS (5)
  - CORONARY ARTERY THROMBOSIS [None]
  - MUSCLE STRAIN [None]
  - MYOCARDIAL INFARCTION [None]
  - PAIN [None]
  - PROCEDURAL COMPLICATION [None]
